FAERS Safety Report 8495517-7 (Version None)
Quarter: 2012Q3

REPORT INFORMATION
  Report Type: 
  Country: None (occurrence: None)
  Receive Date: 20120709
  Receipt Date: 20120703
  Transmission Date: 20120928
  Serious: Yes (Other)
  Sender: FDA-Public Use
  Company Number: US-PFIZER INC-2012161059

PATIENT
  Sex: Female

DRUGS (2)
  1. LIPITOR [Suspect]
     Dosage: UNK
  2. PROTONIX [Suspect]
     Dosage: UNK

REACTIONS (6)
  - MEMORY IMPAIRMENT [None]
  - INFECTION [None]
  - GASTRIC CANCER [None]
  - DYSPEPSIA [None]
  - GASTRIC ULCER [None]
  - MALAISE [None]
